FAERS Safety Report 25877276 (Version 3)
Quarter: 2025Q4

REPORT INFORMATION
  Report Type: Report from Study
  Country: US (occurrence: US)
  Receive Date: 20251003
  Receipt Date: 20251027
  Transmission Date: 20260118
  Serious: Yes (Other)
  Sender: AMGEN
  Company Number: US-AMGEN-USASL2025193597

PATIENT
  Age: 70 Year
  Sex: Female

DRUGS (3)
  1. REPATHA [Suspect]
     Active Substance: EVOLOCUMAB
     Indication: Hypercholesterolaemia
     Dosage: 140 MILLIGRAM, Q2WK
     Route: 058
     Dates: start: 2023
  2. REPATHA [Suspect]
     Active Substance: EVOLOCUMAB
     Indication: Type V hyperlipidaemia
  3. EZETIMIBE [Concomitant]
     Active Substance: EZETIMIBE
     Route: 058

REACTIONS (4)
  - Knee arthroplasty [Unknown]
  - Injection site bruising [Not Recovered/Not Resolved]
  - Device difficult to use [Unknown]
  - Wrong technique in product usage process [Unknown]

NARRATIVE: CASE EVENT DATE: 20230101
